FAERS Safety Report 6418790-5 (Version None)
Quarter: 2009Q4

REPORT INFORMATION
  Report Type: 
  Country: None (occurrence: None)
  Receive Date: 20091026
  Receipt Date: 20091014
  Transmission Date: 20100525
  Serious: Yes (Death, Hospitalization)
  Sender: FDA-Public Use
  Company Number: 2009AC000180

PATIENT
  Age: 63 Year
  Sex: Male

DRUGS (11)
  1. DIGOXIN [Suspect]
     Dosage: 0.125 MG;QD;PO
     Route: 048
  2. ASPIRIN [Concomitant]
  3. PLAVIX [Concomitant]
  4. CRESTOR [Concomitant]
  5. TRICOR [Concomitant]
  6. TOPROL-XL [Concomitant]
  7. COUMADIN [Concomitant]
  8. LASIX [Concomitant]
  9. ACTOS [Concomitant]
  10. PLAVIX [Concomitant]
  11. METFORMIN [Concomitant]

REACTIONS (7)
  - ACUTE MYOCARDIAL INFARCTION [None]
  - ATRIAL FIBRILLATION [None]
  - ECONOMIC PROBLEM [None]
  - GASTROINTESTINAL HAEMORRHAGE [None]
  - MULTIPLE INJURIES [None]
  - PEPTIC ULCER [None]
  - TYPE 2 DIABETES MELLITUS [None]
